FAERS Safety Report 5264780-8 (Version None)
Quarter: 2007Q1

REPORT INFORMATION
  Report Type: 
  Country: None (occurrence: None)
  Receive Date: 20070314
  Receipt Date: 20070301
  Transmission Date: 20070707
  Serious: Yes (Other)
  Sender: FDA-Public Use
  Company Number: PHBS2007CH03739

PATIENT
  Age: 33 Year
  Sex: Female
  Weight: 76 kg

DRUGS (11)
  1. CLOZAPINE [Suspect]
     Indication: SCHIZOPHRENIA, PARANOID TYPE
     Dates: start: 19970101
  2. CLOZAPINE [Suspect]
  3. VALPROIC ACID [Suspect]
     Dates: start: 19990101
  4. VALPROIC ACID [Suspect]
  5. RISPERIDONE [Concomitant]
     Dosage: UNK, UNK
     Dates: start: 20030101
  6. HALOPERIDOL [Concomitant]
  7. ZUCLOPENTHIXOL [Concomitant]
  8. PROMAZIN [Concomitant]
  9. PENFLURIDOL [Concomitant]
  10. QUETIAPINE FUMARATE [Concomitant]
  11. OLANZAPINE [Concomitant]

REACTIONS (8)
  - BLOOD TRIGLYCERIDES INCREASED [None]
  - BODY MASS INDEX INCREASED [None]
  - FATIGUE [None]
  - HIGH DENSITY LIPOPROTEIN DECREASED [None]
  - HYPERTENSION [None]
  - METABOLIC SYNDROME [None]
  - URINARY INCONTINENCE [None]
  - WEIGHT INCREASED [None]
